FAERS Safety Report 13345867 (Version 1)
Quarter: 2017Q1

REPORT INFORMATION
  Report Type: Spontaneous
  Country: US (occurrence: US)
  Receive Date: 20170317
  Receipt Date: 20170317
  Transmission Date: 20170428
  Serious: Yes (Life-Threatening, Hospitalization, Disabling)
  Sender: FDA-Public Use
  Company Number: None

PATIENT
  Age: 89 Year
  Sex: Male
  Weight: 72.64 kg

DRUGS (3)
  1. VIT. D3 [Concomitant]
  2. LODIPINE BESYLATE [Concomitant]
  3. BACLOFEN 20MG TABLET [Suspect]
     Active Substance: BACLOFEN
     Indication: HICCUPS
     Dosage: 20 MG 1 PILL 2/1/17; 1 PILL 2/2/17 3X DAY MOUTH
     Route: 048
     Dates: start: 20170201, end: 20170202

REACTIONS (9)
  - Dizziness [None]
  - Dementia [None]
  - Pain [None]
  - Hyperaesthesia [None]
  - Agitation [None]
  - Somnolence [None]
  - Abnormal behaviour [None]
  - Headache [None]
  - Speech disorder [None]

NARRATIVE: CASE EVENT DATE: 20170202
